FAERS Safety Report 4779689-3 (Version None)
Quarter: 2005Q3

REPORT INFORMATION
  Report Type: 
  Country: None (occurrence: None)
  Receive Date: 20050927
  Receipt Date: 20050520
  Transmission Date: 20060218
  Serious: Yes (Other)
  Sender: FDA-Public Use
  Company Number: PHEH2005US05803

PATIENT
  Age: 60 Year
  Sex: Female
  Weight: 36 kg

DRUGS (23)
  1. ZOMETA [Suspect]
     Indication: BREAST CANCER
     Dosage: 4MG QMO
     Route: 042
     Dates: start: 20040101, end: 20050201
  2. LISINOPRIL [Concomitant]
     Dosage: 5 MG, QD
  3. ATENOLOL [Concomitant]
     Dosage: 25 MG, QD
  4. PREVACID [Concomitant]
     Dosage: 30 MG, QD
  5. OXYCODONE HCL [Concomitant]
     Dosage: 30 MG, Q12H
  6. PREDNISONE [Concomitant]
     Dosage: MULTIPLE COURSES
  7. AMBIEN [Concomitant]
  8. ALBUTEROL [Concomitant]
  9. FLOVENT [Concomitant]
  10. DIGOXIN [Concomitant]
     Dosage: 0.125 MG, QD
  11. RITUXAN [Concomitant]
     Indication: LYMPHOMA
     Dosage: UNK Q6MO
     Dates: start: 20031101
  12. RITUXAN [Concomitant]
     Dosage: 446 MG, UNK
     Dates: start: 20050905, end: 20050905
  13. RITUXAN [Concomitant]
     Dosage: 446 MG, UNK
     Dates: start: 20050915, end: 20050915
  14. ZINC [Concomitant]
  15. MULTI-VITAMINS [Concomitant]
  16. OXYIR [Concomitant]
     Dosage: 5 - 10 MG PRN
  17. TUMS [Concomitant]
  18. ZANTAC [Concomitant]
     Dosage: 50 MG, UNK
     Dates: start: 20050905, end: 20050905
  19. ZANTAC [Concomitant]
     Dosage: 50 MG, UNK
     Dates: start: 20050915, end: 20050915
  20. BENADRYL [Concomitant]
     Dosage: 25 MG, UNK
     Dates: start: 20050905, end: 20050905
  21. BENADRYL [Concomitant]
     Dosage: 25 MG, UNK
     Dates: start: 20050915, end: 20050915
  22. TYLENOL (CAPLET) [Concomitant]
     Dosage: 650 MG, UNK
     Dates: start: 20050905, end: 20050905
  23. TYLENOL (CAPLET) [Concomitant]
     Dosage: 650 MG, UNK
     Dates: start: 20050915, end: 20050915

REACTIONS (12)
  - ASEPTIC NECROSIS BONE [None]
  - BLOOD IMMUNOGLOBULIN M INCREASED [None]
  - DENTAL CARIES [None]
  - DISEASE PROGRESSION [None]
  - MASTICATION DISORDER [None]
  - PAIN IN EXTREMITY [None]
  - PYREXIA [None]
  - RHINORRHOEA [None]
  - TOOTH EXTRACTION [None]
  - TOOTH LOSS [None]
  - WEIGHT DECREASED [None]
  - WEIGHT GAIN POOR [None]
